FAERS Safety Report 7739403-6 (Version None)
Quarter: 2011Q3

REPORT INFORMATION
  Report Type: 
  Country: None (occurrence: None)
  Receive Date: 20110909
  Receipt Date: 20110901
  Transmission Date: 20111222
  Serious: Yes (Life-Threatening)
  Sender: FDA-Public Use
  Company Number: GB-TEVA-299161ISR

PATIENT
  Age: 79 Year
  Sex: Female

DRUGS (1)
  1. RISEDRONIC ACID [Suspect]
     Indication: OSTEOPOROSIS
     Dosage: 5 MILLIGRAM;
     Route: 048

REACTIONS (2)
  - GASTRIC ULCER [None]
  - GASTRIC ULCER HAEMORRHAGE [None]
